FAERS Safety Report 13429902 (Version 17)
Quarter: 2018Q1

REPORT INFORMATION
  Report Type: Report from Study
  Country: US (occurrence: US)
  Receive Date: 20170412
  Receipt Date: 20180330
  Transmission Date: 20180508
  Serious: Yes (Hospitalization)
  Sender: FDA-Public Use
  Company Number: US-ROCHE-1183975

PATIENT
  Age: 52 Year
  Sex: Male
  Weight: 85 kg

DRUGS (211)
  1. OCRELIZUMAB. [Suspect]
     Active Substance: OCRELIZUMAB
     Route: 042
     Dates: start: 20170905, end: 20170905
  2. EPSOM SALT [Concomitant]
     Active Substance: MAGNESIUM SULFATE
     Indication: HAEMATOMA
     Dosage: APPLICATION OF WARM WATER SOAKS 1 CUP
     Route: 065
     Dates: start: 20170621, end: 20170831
  3. ACETAMINOPHEN. [Concomitant]
     Active Substance: ACETAMINOPHEN
     Route: 065
     Dates: start: 20151001, end: 20151001
  4. METHYLPREDNISOLONE. [Concomitant]
     Active Substance: METHYLPREDNISOLONE
     Route: 065
     Dates: start: 20130621, end: 20130621
  5. METHYLPREDNISOLONE. [Concomitant]
     Active Substance: METHYLPREDNISOLONE
     Route: 065
     Dates: start: 20160907, end: 20160907
  6. CELEXA [Concomitant]
     Active Substance: CITALOPRAM HYDROBROMIDE
     Indication: DEPRESSION
     Route: 065
     Dates: start: 20130124, end: 20160424
  7. CELEXA [Concomitant]
     Active Substance: CITALOPRAM HYDROBROMIDE
     Route: 048
  8. MAGNESIUM SULFATE. [Concomitant]
     Active Substance: MAGNESIUM SULFATE
     Indication: BLOOD MAGNESIUM DECREASED
     Route: 065
     Dates: start: 20130125, end: 20130125
  9. VITAMIN C [Concomitant]
     Active Substance: ASCORBIC ACID
     Route: 065
     Dates: start: 20150108
  10. POTASSIUM CHLORIDE. [Concomitant]
     Active Substance: POTASSIUM CHLORIDE
     Dosage: POTASSIUM REPLACEMENT WHILE  ON DIURETIC
     Route: 065
     Dates: start: 20170316, end: 20170416
  11. POTASSIUM CHLORIDE. [Concomitant]
     Active Substance: POTASSIUM CHLORIDE
     Dosage: FOR HYPOKALEMIA
     Route: 065
     Dates: start: 20140818, end: 20140818
  12. DIPHENHYDRAMINE. [Concomitant]
     Active Substance: DIPHENHYDRAMINE
     Route: 065
     Dates: start: 20141029, end: 20141029
  13. SOMA [Concomitant]
     Active Substance: CARISOPRODOL
     Indication: MUSCLE RELAXANT THERAPY
     Route: 065
     Dates: start: 20160511, end: 20160622
  14. DOXYCYCLINE HYCLATE. [Concomitant]
     Active Substance: DOXYCYCLINE HYCLATE
     Indication: UPPER RESPIRATORY TRACT INFECTION
     Route: 065
     Dates: start: 20160425, end: 20160502
  15. DOCUSATE SODIUM. [Concomitant]
     Active Substance: DOCUSATE SODIUM
     Route: 065
     Dates: start: 20160425, end: 20160502
  16. DOCUSATE [Concomitant]
     Active Substance: DOCUSATE
     Indication: CONSTIPATION
     Route: 065
     Dates: start: 20160429, end: 20160501
  17. LOVENOX [Concomitant]
     Active Substance: ENOXAPARIN SODIUM
     Indication: THROMBOSIS PROPHYLAXIS
     Route: 065
     Dates: start: 20160425, end: 20160429
  18. OCRELIZUMAB. [Suspect]
     Active Substance: OCRELIZUMAB
     Route: 042
     Dates: start: 20130621, end: 20130621
  19. OCRELIZUMAB. [Suspect]
     Active Substance: OCRELIZUMAB
     Route: 042
     Dates: start: 20131210, end: 20131210
  20. OCRELIZUMAB. [Suspect]
     Active Substance: OCRELIZUMAB
     Route: 042
     Dates: start: 20141112, end: 20141112
  21. OCRELIZUMAB. [Suspect]
     Active Substance: OCRELIZUMAB
     Route: 042
     Dates: start: 20151023, end: 20151023
  22. METHYLPREDNISOLONE. [Concomitant]
     Active Substance: METHYLPREDNISOLONE
     Route: 065
     Dates: start: 20141112, end: 20141112
  23. METHYLPREDNISOLONE. [Concomitant]
     Active Substance: METHYLPREDNISOLONE
     Route: 065
     Dates: start: 20151001, end: 20151001
  24. METHYLPREDNISOLONE. [Concomitant]
     Active Substance: METHYLPREDNISOLONE
     Route: 065
     Dates: start: 20151023, end: 20151023
  25. METHYLPREDNISOLONE. [Concomitant]
     Active Substance: METHYLPREDNISOLONE
     Route: 065
     Dates: start: 20170316, end: 20170316
  26. FLOMAX [Concomitant]
     Active Substance: TAMSULOSIN HYDROCHLORIDE
     Route: 065
     Dates: start: 20140818
  27. GARLIC OIL [Concomitant]
     Active Substance: GARLIC OIL
     Route: 065
     Dates: start: 19980101, end: 20140816
  28. INFLUENZA VACCINE [Concomitant]
     Active Substance: INFLUENZA VIRUS VACCINE
     Route: 065
     Dates: start: 20161031, end: 20161031
  29. INFLUENZA VACCINE [Concomitant]
     Active Substance: INFLUENZA VIRUS VACCINE
     Dosage: PROPHYLAXSIS OF INFLUENZA
     Route: 065
     Dates: start: 20171101, end: 20171101
  30. METAMUCIL [Concomitant]
     Active Substance: PLANTAGO SEED
     Indication: CONSTIPATION
     Route: 065
     Dates: start: 20130129, end: 20130212
  31. HALLS COUGH LOZENGE [Concomitant]
     Indication: UPPER RESPIRATORY TRACT INFECTION
     Dosage: DOSE: 1 LOZENGE
     Route: 065
     Dates: start: 20130322, end: 20130329
  32. SOLU-CORTEF [Concomitant]
     Active Substance: HYDROCORTISONE SODIUM SUCCINATE
     Route: 065
     Dates: start: 20140817, end: 20140817
  33. SODIUM CHLORIDE. [Concomitant]
     Active Substance: SODIUM CHLORIDE
     Indication: ASTHENIA
     Route: 065
     Dates: start: 20160425, end: 20160425
  34. SODIUM CHLORIDE. [Concomitant]
     Active Substance: SODIUM CHLORIDE
     Route: 065
     Dates: start: 20160425, end: 20160429
  35. PYRIDIUM [Concomitant]
     Active Substance: PHENAZOPYRIDINE
     Indication: SUPRAPUBIC PAIN
  36. DIPHENHYDRAMINE. [Concomitant]
     Active Substance: DIPHENHYDRAMINE
     Indication: PREMEDICATION
     Route: 065
     Dates: start: 20121227, end: 20121227
  37. DIPHENHYDRAMINE. [Concomitant]
     Active Substance: DIPHENHYDRAMINE
     Route: 065
     Dates: start: 20131210, end: 20131210
  38. DIPHENHYDRAMINE. [Concomitant]
     Active Substance: DIPHENHYDRAMINE
     Route: 065
     Dates: start: 20140513, end: 20140513
  39. DIPHENHYDRAMINE. [Concomitant]
     Active Substance: DIPHENHYDRAMINE
     Route: 065
     Dates: start: 20151014, end: 20151014
  40. DIPHENHYDRAMINE. [Concomitant]
     Active Substance: DIPHENHYDRAMINE
     Route: 065
     Dates: start: 20160321, end: 20160321
  41. SOMA [Concomitant]
     Active Substance: CARISOPRODOL
     Route: 065
     Dates: start: 20160623, end: 20161123
  42. OPIUM + BELLADONNA [Concomitant]
     Indication: BLADDER SPASM
     Route: 065
     Dates: start: 20140817, end: 20140826
  43. LOVENOX [Concomitant]
     Active Substance: ENOXAPARIN SODIUM
     Route: 065
     Dates: start: 20170303, end: 20170305
  44. PEPTO-BISMOL [Concomitant]
     Active Substance: BISMUTH SUBSALICYLATE
     Indication: VOMITING
     Route: 065
     Dates: start: 20170830, end: 20170831
  45. PODIATRY [Concomitant]
     Indication: HAEMATOMA
     Dosage: 1 TRIM
     Route: 065
     Dates: start: 20170621, end: 20170831
  46. OCRELIZUMAB. [Suspect]
     Active Substance: OCRELIZUMAB
     Dosage: CYCLE 1
     Route: 042
     Dates: start: 20160401, end: 20160401
  47. OCRELIZUMAB. [Suspect]
     Active Substance: OCRELIZUMAB
     Route: 042
     Dates: start: 20170216, end: 20170216
  48. ACETAMINOPHEN. [Concomitant]
     Active Substance: ACETAMINOPHEN
     Indication: PREMEDICATION
     Route: 065
     Dates: start: 20121227, end: 20121227
  49. ACETAMINOPHEN. [Concomitant]
     Active Substance: ACETAMINOPHEN
     Route: 065
     Dates: start: 20130709, end: 20130709
  50. ACETAMINOPHEN. [Concomitant]
     Active Substance: ACETAMINOPHEN
     Route: 065
     Dates: start: 20141112, end: 20141112
  51. ACETAMINOPHEN. [Concomitant]
     Active Substance: ACETAMINOPHEN
     Route: 065
     Dates: start: 20150415, end: 20150415
  52. ACETAMINOPHEN. [Concomitant]
     Active Substance: ACETAMINOPHEN
     Route: 065
     Dates: start: 20160401, end: 20160401
  53. ACETAMINOPHEN. [Concomitant]
     Active Substance: ACETAMINOPHEN
     Route: 065
     Dates: start: 20160927, end: 20160927
  54. METHYLPREDNISOLONE. [Concomitant]
     Active Substance: METHYLPREDNISOLONE
     Route: 065
     Dates: start: 20131210, end: 20131210
  55. BACLOFEN. [Concomitant]
     Active Substance: BACLOFEN
     Route: 065
     Dates: start: 20140817, end: 20140818
  56. BACLOFEN. [Concomitant]
     Active Substance: BACLOFEN
     Route: 065
     Dates: start: 20150115
  57. LISINOPRIL. [Concomitant]
     Active Substance: LISINOPRIL
     Indication: HYPERTENSION
     Route: 065
     Dates: start: 19950101, end: 20161027
  58. VITAMIN C [Concomitant]
     Active Substance: ASCORBIC ACID
     Route: 065
     Dates: start: 20130101, end: 20140816
  59. CIPROFLOXACIN. [Concomitant]
     Active Substance: CIPROFLOXACIN
     Indication: URINARY TRACT INFECTION
     Route: 065
     Dates: start: 20140819, end: 20140901
  60. CIPROFLOXACIN. [Concomitant]
     Active Substance: CIPROFLOXACIN
     Indication: SEPSIS
     Route: 065
     Dates: start: 20151002, end: 20151008
  61. ZOSYN [Concomitant]
     Active Substance: PIPERACILLIN SODIUM\TAZOBACTAM SODIUM
     Indication: SEPSIS
     Route: 065
     Dates: start: 20140816, end: 20140818
  62. ZOSYN [Concomitant]
     Active Substance: PIPERACILLIN SODIUM\TAZOBACTAM SODIUM
     Indication: SYSTEMIC INFLAMMATORY RESPONSE SYNDROME
  63. SODIUM CHLORIDE. [Concomitant]
     Active Substance: SODIUM CHLORIDE
     Indication: LOWER RESPIRATORY TRACT INFECTION
     Route: 065
     Dates: start: 20140816, end: 20140818
  64. PYRIDIUM [Concomitant]
     Active Substance: PHENAZOPYRIDINE
     Indication: BLADDER SPASM
     Route: 065
     Dates: start: 20140817, end: 20140818
  65. DIPHENHYDRAMINE. [Concomitant]
     Active Substance: DIPHENHYDRAMINE
     Route: 065
     Dates: start: 20160927, end: 20160927
  66. ALPRAZOLAM. [Concomitant]
     Active Substance: ALPRAZOLAM
     Indication: ANXIETY
     Route: 065
     Dates: start: 20150415
  67. TYLENOL [Concomitant]
     Active Substance: ACETAMINOPHEN
     Route: 065
     Dates: start: 20161103, end: 20161116
  68. SENNOSIDE [Concomitant]
     Active Substance: SENNOSIDES
     Route: 065
     Dates: start: 20160425, end: 20160428
  69. FAMOTIDINE. [Concomitant]
     Active Substance: FAMOTIDINE
     Route: 065
     Dates: start: 20160425, end: 20160428
  70. IPRATROPIUM [Concomitant]
     Active Substance: IPRATROPIUM
     Indication: PNEUMONIA
  71. OCRELIZUMAB. [Suspect]
     Active Substance: OCRELIZUMAB
     Route: 042
     Dates: start: 20130709, end: 20130709
  72. OCRELIZUMAB. [Suspect]
     Active Substance: OCRELIZUMAB
     Route: 042
     Dates: start: 20131125, end: 20131125
  73. OCRELIZUMAB. [Suspect]
     Active Substance: OCRELIZUMAB
     Route: 042
     Dates: start: 20160927, end: 20160927
  74. ACETAMINOPHEN. [Concomitant]
     Active Substance: ACETAMINOPHEN
     Route: 065
     Dates: start: 20131125, end: 20131125
  75. ACETAMINOPHEN. [Concomitant]
     Active Substance: ACETAMINOPHEN
     Route: 065
     Dates: start: 20141029, end: 20141029
  76. ACETAMINOPHEN. [Concomitant]
     Active Substance: ACETAMINOPHEN
     Route: 065
     Dates: start: 20151023, end: 20151023
  77. ACETAMINOPHEN. [Concomitant]
     Active Substance: ACETAMINOPHEN
     Route: 065
     Dates: start: 20160426, end: 20160426
  78. ACETAMINOPHEN. [Concomitant]
     Active Substance: ACETAMINOPHEN
     Route: 065
     Dates: start: 20171218
  79. METHYLPREDNISOLONE. [Concomitant]
     Active Substance: METHYLPREDNISOLONE
     Route: 065
     Dates: start: 20130110, end: 20130110
  80. METHYLPREDNISOLONE. [Concomitant]
     Active Substance: METHYLPREDNISOLONE
     Route: 065
     Dates: start: 20140527, end: 20140527
  81. METHYLPREDNISOLONE. [Concomitant]
     Active Substance: METHYLPREDNISOLONE
     Route: 065
     Dates: start: 20150427, end: 20150427
  82. METHYLPREDNISOLONE. [Concomitant]
     Active Substance: METHYLPREDNISOLONE
     Route: 065
     Dates: start: 20160321, end: 20160321
  83. BACLOFEN. [Concomitant]
     Active Substance: BACLOFEN
     Indication: MUSCLE RELAXANT THERAPY
     Route: 065
     Dates: start: 20060101, end: 20130125
  84. VITAMIN D3 [Concomitant]
     Active Substance: CHOLECALCIFEROL
     Route: 065
     Dates: start: 19980101, end: 20140816
  85. ENOXAPARIN [Concomitant]
     Active Substance: ENOXAPARIN
     Indication: THROMBOSIS PROPHYLAXIS
     Route: 065
     Dates: start: 20130126, end: 20130129
  86. ENOXAPARIN [Concomitant]
     Active Substance: ENOXAPARIN
     Route: 065
     Dates: start: 20130130, end: 20130212
  87. METAMUCIL [Concomitant]
     Active Substance: PLANTAGO SEED
     Indication: DIARRHOEA
     Route: 065
     Dates: start: 20140824, end: 20140827
  88. FIBERCON [Concomitant]
     Active Substance: CALCIUM POLYCARBOPHIL
     Indication: CONSTIPATION
     Route: 065
     Dates: start: 20140905
  89. MIRALAX [Concomitant]
     Active Substance: POLYETHYLENE GLYCOL 3350
     Indication: CONSTIPATION
     Route: 065
     Dates: start: 20140817, end: 20140905
  90. OXYCODONE [Concomitant]
     Active Substance: OXYCODONE
     Indication: BACK PAIN
     Route: 065
     Dates: start: 20160425, end: 20160429
  91. ZOSYN [Concomitant]
     Active Substance: PIPERACILLIN SODIUM\TAZOBACTAM SODIUM
     Indication: URINARY TRACT INFECTION
  92. SODIUM CHLORIDE. [Concomitant]
     Active Substance: SODIUM CHLORIDE
     Dosage: RECEIVED FROM 20/APR/2017-01/MAY/2017
     Route: 041
     Dates: start: 20161027, end: 20161027
  93. POTASSIUM CHLORIDE. [Concomitant]
     Active Substance: POTASSIUM CHLORIDE
     Dosage: POTASSIUM REPLACEMENT WHILE  ON DIURETIC
     Route: 065
     Dates: start: 20170309, end: 20170315
  94. DIPHENHYDRAMINE. [Concomitant]
     Active Substance: DIPHENHYDRAMINE
     Route: 065
     Dates: start: 20130709, end: 20130709
  95. DIPHENHYDRAMINE. [Concomitant]
     Active Substance: DIPHENHYDRAMINE
     Route: 065
     Dates: start: 20131125, end: 20131125
  96. CATHETERIZATION [Concomitant]
     Indication: URINARY RETENTION
     Route: 065
     Dates: start: 20140815, end: 20140815
  97. ADVIL [Concomitant]
     Active Substance: IBUPROFEN
     Indication: UPPER RESPIRATORY TRACT INFECTION
     Route: 065
     Dates: start: 20150731, end: 20150810
  98. CODEINE [Concomitant]
     Active Substance: CODEINE
     Indication: BRONCHITIS
     Route: 065
     Dates: start: 20171218, end: 20171221
  99. OCRELIZUMAB. [Suspect]
     Active Substance: OCRELIZUMAB
     Indication: PRIMARY PROGRESSIVE MULTIPLE SCLEROSIS
     Dosage: TWO INTRAVENOUS (IV) INFUSIONS OF OCRELIZUMAB SEPARATED BY 14 DAYS IN EACH TREATMENT CYCLE OF DOUBLE
     Route: 042
     Dates: start: 20121227, end: 20121227
  100. OCRELIZUMAB. [Suspect]
     Active Substance: OCRELIZUMAB
     Route: 042
     Dates: start: 20140527, end: 20140527
  101. ACETAMINOPHEN. [Concomitant]
     Active Substance: ACETAMINOPHEN
     Route: 065
     Dates: start: 20130110, end: 20130110
  102. ACETAMINOPHEN. [Concomitant]
     Active Substance: ACETAMINOPHEN
     Route: 065
     Dates: start: 20140527, end: 20140527
  103. ACETAMINOPHEN. [Concomitant]
     Active Substance: ACETAMINOPHEN
     Route: 065
     Dates: start: 20160907, end: 20160907
  104. FLOMAX [Concomitant]
     Active Substance: TAMSULOSIN HYDROCHLORIDE
     Indication: NEUROGENIC BLADDER
     Route: 065
     Dates: start: 20060101, end: 20140816
  105. OMEGA 3 [Concomitant]
     Active Substance: OMEGA-3 FATTY ACIDS
     Route: 065
     Dates: start: 19980101, end: 20140816
  106. DULCOLAX (BISACODYL) [Concomitant]
     Active Substance: BISACODYL
     Indication: CONSTIPATION
     Route: 065
     Dates: start: 20130129, end: 20130213
  107. VALIUM [Concomitant]
     Active Substance: DIAZEPAM
     Route: 065
     Dates: start: 20121212, end: 20121212
  108. HEPARIN [Concomitant]
     Active Substance: HEPARIN SODIUM
     Indication: PROPHYLAXIS
     Route: 065
     Dates: start: 20140816, end: 20140826
  109. OXYCODONE [Concomitant]
     Active Substance: OXYCODONE
     Indication: GROIN PAIN
  110. SODIUM CHLORIDE. [Concomitant]
     Active Substance: SODIUM CHLORIDE
     Route: 040
     Dates: start: 20161026, end: 20161026
  111. DIPHENHYDRAMINE. [Concomitant]
     Active Substance: DIPHENHYDRAMINE
     Route: 065
     Dates: start: 20170316, end: 20170316
  112. DOBUTAMINE [Concomitant]
     Active Substance: DOBUTAMINE\DOBUTAMINE HYDROCHLORIDE
     Indication: TACHYCARDIA
     Route: 065
     Dates: start: 20150226, end: 20150226
  113. CEFTRIAXONE. [Concomitant]
     Active Substance: CEFTRIAXONE
     Indication: LEUKOCYTOSIS
  114. IPRATROPIUM [Concomitant]
     Active Substance: IPRATROPIUM
     Indication: WHEEZING
     Route: 065
     Dates: start: 20171218, end: 20171221
  115. IPRATROPIUM [Concomitant]
     Active Substance: IPRATROPIUM
     Indication: BRONCHITIS
  116. MICONAZOLE NITRATE. [Concomitant]
     Active Substance: MICONAZOLE NITRATE
     Indication: GROIN INFECTION
     Route: 065
     Dates: start: 20171202, end: 20171217
  117. TAMIFLU [Concomitant]
     Active Substance: OSELTAMIVIR PHOSPHATE
     Indication: INFLUENZA
     Route: 065
     Dates: start: 20171218, end: 20171222
  118. GUAIFENESIN. [Concomitant]
     Active Substance: GUAIFENESIN
     Dosage: INFLUENZA A
     Route: 065
     Dates: start: 20171218, end: 20171221
  119. ACETAMINOPHEN. [Concomitant]
     Active Substance: ACETAMINOPHEN
     Route: 065
     Dates: start: 20130621, end: 20130621
  120. ACETAMINOPHEN. [Concomitant]
     Active Substance: ACETAMINOPHEN
     Route: 048
     Dates: start: 20131210, end: 20131210
  121. ACETAMINOPHEN. [Concomitant]
     Active Substance: ACETAMINOPHEN
     Route: 065
     Dates: start: 20170216, end: 20170216
  122. METHYLPREDNISOLONE. [Concomitant]
     Active Substance: METHYLPREDNISOLONE
     Route: 065
     Dates: start: 20131125, end: 20131125
  123. METHYLPREDNISOLONE. [Concomitant]
     Active Substance: METHYLPREDNISOLONE
     Route: 065
     Dates: start: 20140513, end: 20140513
  124. METHYLPREDNISOLONE. [Concomitant]
     Active Substance: METHYLPREDNISOLONE
     Route: 065
     Dates: start: 20141029, end: 20141029
  125. BACLOFEN. [Concomitant]
     Active Substance: BACLOFEN
     Indication: MUSCLE SPASTICITY
     Route: 065
     Dates: start: 20140817, end: 20140817
  126. INFLUENZA VACCINE [Concomitant]
     Active Substance: INFLUENZA VIRUS VACCINE
     Route: 065
     Dates: start: 20130124, end: 20130124
  127. INFLUENZA VACCINE [Concomitant]
     Active Substance: INFLUENZA VIRUS VACCINE
     Route: 065
     Dates: start: 20131028, end: 20131028
  128. METAMUCIL [Concomitant]
     Active Substance: PLANTAGO SEED
     Route: 065
     Dates: start: 20140828
  129. BELLADONNA, SUPPOSITORY [Concomitant]
     Indication: BLADDER SPASM
     Route: 065
     Dates: start: 20140817, end: 20140826
  130. ZOSYN [Concomitant]
     Active Substance: PIPERACILLIN SODIUM\TAZOBACTAM SODIUM
     Indication: LEUKOCYTOSIS
  131. TESTIM [Concomitant]
     Active Substance: TESTOSTERONE
     Indication: BLOOD TESTOSTERONE DECREASED
     Route: 065
     Dates: start: 20140327, end: 20140812
  132. POTASSIUM CHLORIDE. [Concomitant]
     Active Substance: POTASSIUM CHLORIDE
     Route: 065
     Dates: start: 20170417, end: 20170816
  133. DIPHENHYDRAMINE. [Concomitant]
     Active Substance: DIPHENHYDRAMINE
     Route: 065
     Dates: start: 20130621, end: 20130621
  134. DIPHENHYDRAMINE. [Concomitant]
     Active Substance: DIPHENHYDRAMINE
     Route: 065
     Dates: start: 20140527, end: 20140527
  135. DIPHENHYDRAMINE. [Concomitant]
     Active Substance: DIPHENHYDRAMINE
     Route: 065
     Dates: start: 20141112, end: 20141112
  136. DIPHENHYDRAMINE. [Concomitant]
     Active Substance: DIPHENHYDRAMINE
     Route: 065
     Dates: start: 20160907, end: 20160907
  137. ZOLPIDEM TARTRATE. [Concomitant]
     Active Substance: ZOLPIDEM TARTRATE
     Indication: INSOMNIA
     Route: 065
     Dates: start: 20160425, end: 20160429
  138. DIPHENHYDRAMINE HCL [Concomitant]
     Active Substance: DIPHENHYDRAMINE HYDROCHLORIDE
     Indication: UPPER RESPIRATORY TRACT INFECTION
     Route: 065
     Dates: start: 20150731, end: 20150804
  139. CEFTRIAXONE. [Concomitant]
     Active Substance: CEFTRIAXONE
     Indication: URINARY TRACT INFECTION
     Route: 065
     Dates: start: 20140818, end: 20140819
  140. AMBIEN [Concomitant]
     Active Substance: ZOLPIDEM TARTRATE
     Route: 065
     Dates: start: 20171106, end: 20171221
  141. BENZOCAINE/MENTHOL [Concomitant]
     Indication: BRONCHITIS
     Dosage: 1 OTHER, LOZENGE
     Route: 065
     Dates: start: 20171218, end: 20171221
  142. BENZOCAINE/MENTHOL [Concomitant]
     Indication: PNEUMONIA
  143. HYDROCORTISONE. [Concomitant]
     Active Substance: HYDROCORTISONE
     Indication: RASH
     Dosage: 2 OTHER, APPLICATIONS
     Route: 065
     Dates: start: 20171202, end: 20180202
  144. HYDROCORTISONE. [Concomitant]
     Active Substance: HYDROCORTISONE
     Dosage: 2 OTHER, APPLICATIONS
     Route: 065
     Dates: start: 20171120, end: 20171201
  145. OCRELIZUMAB. [Suspect]
     Active Substance: OCRELIZUMAB
     Route: 042
     Dates: start: 20130110, end: 20130110
  146. OCRELIZUMAB. [Suspect]
     Active Substance: OCRELIZUMAB
     Route: 042
     Dates: start: 20150415, end: 20150415
  147. OCRELIZUMAB. [Suspect]
     Active Substance: OCRELIZUMAB
     Route: 042
     Dates: start: 20150427, end: 20150427
  148. OCRELIZUMAB. [Suspect]
     Active Substance: OCRELIZUMAB
     Indication: PRIMARY PROGRESSIVE MULTIPLE SCLEROSIS
     Dosage: TWO IV INFUSIONS OF OCRELIZUMAB 300 MG SEPARATED BY 14 DAYS FOR CYCLE 1 AND SINGLE IV INFUSION OF OC
     Route: 042
     Dates: start: 20160321, end: 20160321
  149. OCRELIZUMAB. [Suspect]
     Active Substance: OCRELIZUMAB
     Route: 042
     Dates: start: 20170316, end: 20170316
  150. ACETAMINOPHEN. [Concomitant]
     Active Substance: ACETAMINOPHEN
     Route: 065
     Dates: start: 20140513, end: 20140513
  151. ACETAMINOPHEN. [Concomitant]
     Active Substance: ACETAMINOPHEN
     Dosage: FOR UPPER RESPIRATORY INFECTION
     Route: 065
     Dates: start: 20150731, end: 20150804
  152. ACETAMINOPHEN. [Concomitant]
     Active Substance: ACETAMINOPHEN
     Route: 065
     Dates: start: 20170316, end: 20170316
  153. ACETAMINOPHEN. [Concomitant]
     Active Substance: ACETAMINOPHEN
     Route: 048
  154. METHYLPREDNISOLONE. [Concomitant]
     Active Substance: METHYLPREDNISOLONE
     Indication: PREMEDICATION
     Route: 065
     Dates: start: 20121227, end: 20121227
  155. METHYLPREDNISOLONE. [Concomitant]
     Active Substance: METHYLPREDNISOLONE
     Route: 065
     Dates: start: 20160401, end: 20160401
  156. METHYLPREDNISOLONE. [Concomitant]
     Active Substance: METHYLPREDNISOLONE
     Route: 065
     Dates: start: 20170216, end: 20170216
  157. BACLOFEN. [Concomitant]
     Active Substance: BACLOFEN
     Indication: MULTIPLE SCLEROSIS
     Route: 065
     Dates: start: 20130126, end: 20140526
  158. BACLOFEN. [Concomitant]
     Active Substance: BACLOFEN
     Route: 048
  159. CELEXA [Concomitant]
     Active Substance: CITALOPRAM HYDROBROMIDE
     Route: 065
     Dates: start: 20160425, end: 20170417
  160. CELEXA [Concomitant]
     Active Substance: CITALOPRAM HYDROBROMIDE
     Route: 065
     Dates: start: 20170418
  161. MAGNESIUM HYDROXIDE. [Concomitant]
     Active Substance: MAGNESIUM HYDROXIDE
     Indication: CONSTIPATION
     Route: 065
     Dates: start: 20130129, end: 20130212
  162. XANAX [Concomitant]
     Active Substance: ALPRAZOLAM
     Route: 065
     Dates: start: 20140121
  163. CIPROFLOXACIN. [Concomitant]
     Active Substance: CIPROFLOXACIN
     Indication: LEUKOCYTOSIS
  164. SOLU-CORTEF [Concomitant]
     Active Substance: HYDROCORTISONE SODIUM SUCCINATE
     Route: 065
     Dates: start: 20140816, end: 20140816
  165. SIMETHICONE (DIMETHICONE) [Concomitant]
     Active Substance: DIMETHICONE
     Indication: FLATULENCE
     Route: 065
     Dates: start: 20140818, end: 20140818
  166. POTASSIUM CHLORIDE. [Concomitant]
     Active Substance: POTASSIUM CHLORIDE
     Indication: HYPOKALAEMIA
     Dosage: RECEIVED ON: 17/APR/2017
     Route: 065
     Dates: start: 20140818, end: 20140818
  167. POTASSIUM CHLORIDE. [Concomitant]
     Active Substance: POTASSIUM CHLORIDE
     Indication: LOWER RESPIRATORY TRACT INFECTION
     Dosage: (PER LITRE OF DEXTROSE 5%)
     Route: 065
     Dates: start: 20160425, end: 20160429
  168. DIPHENHYDRAMINE. [Concomitant]
     Active Substance: DIPHENHYDRAMINE
     Route: 065
     Dates: start: 20130110, end: 20130110
  169. DIPHENHYDRAMINE. [Concomitant]
     Active Substance: DIPHENHYDRAMINE
     Route: 065
     Dates: start: 20150415, end: 20150415
  170. DIPHENHYDRAMINE. [Concomitant]
     Active Substance: DIPHENHYDRAMINE
     Route: 065
     Dates: start: 20150427, end: 20150427
  171. DIPHENHYDRAMINE. [Concomitant]
     Active Substance: DIPHENHYDRAMINE
     Route: 065
     Dates: start: 20160401, end: 20160401
  172. DIPHENHYDRAMINE. [Concomitant]
     Active Substance: DIPHENHYDRAMINE
     Route: 065
     Dates: start: 20170216, end: 20170216
  173. OMNISCAN [Concomitant]
     Active Substance: GADODIAMIDE
     Route: 065
     Dates: start: 20150422, end: 20150422
  174. ZOLPIDEM TARTRATE. [Concomitant]
     Active Substance: ZOLPIDEM TARTRATE
     Dosage: AS NEEDED
     Route: 048
  175. ALBUTEROL SULFATE. [Concomitant]
     Active Substance: ALBUTEROL SULFATE
     Indication: LOWER RESPIRATORY TRACT INFECTION
     Route: 065
     Dates: start: 20160425, end: 20160429
  176. GADOBUTROL [Concomitant]
     Active Substance: GADOBUTROL
     Route: 065
     Dates: start: 20160407, end: 20160407
  177. CEFTRIAXONE. [Concomitant]
     Active Substance: CEFTRIAXONE
     Indication: SEPSIS
  178. PEPTO-BISMOL [Concomitant]
     Active Substance: BISMUTH SUBSALICYLATE
     Indication: DIARRHOEA
  179. CODEINE [Concomitant]
     Active Substance: CODEINE
     Indication: COUGH
  180. KETOCONAZOLE. [Concomitant]
     Active Substance: KETOCONAZOLE
     Indication: SEBORRHOEIC DERMATITIS
     Dosage: 1 OTHER, APPLICATION
     Route: 065
     Dates: start: 20171202, end: 20171217
  181. OCRELIZUMAB. [Suspect]
     Active Substance: OCRELIZUMAB
     Route: 042
     Dates: start: 20140513, end: 20140513
  182. OCRELIZUMAB. [Suspect]
     Active Substance: OCRELIZUMAB
     Route: 042
     Dates: start: 20151001, end: 20151001
  183. OCRELIZUMAB. [Suspect]
     Active Substance: OCRELIZUMAB
     Route: 042
     Dates: start: 20160907, end: 20160907
  184. VICKS NYQUIL COUGH LIQUID [Concomitant]
     Indication: ANTITUSSIVE THERAPY
     Route: 065
     Dates: start: 20130430, end: 20130512
  185. ACETAMINOPHEN. [Concomitant]
     Active Substance: ACETAMINOPHEN
     Route: 048
     Dates: start: 20150427, end: 20150427
  186. ACETAMINOPHEN. [Concomitant]
     Active Substance: ACETAMINOPHEN
     Route: 065
     Dates: start: 20160321, end: 20160321
  187. METHYLPREDNISOLONE. [Concomitant]
     Active Substance: METHYLPREDNISOLONE
     Route: 065
     Dates: start: 20130709, end: 20130709
  188. METHYLPREDNISOLONE. [Concomitant]
     Active Substance: METHYLPREDNISOLONE
     Route: 065
     Dates: start: 20150415, end: 20150415
  189. METHYLPREDNISOLONE. [Concomitant]
     Active Substance: METHYLPREDNISOLONE
     Route: 065
     Dates: start: 20160927, end: 20160927
  190. BACLOFEN. [Concomitant]
     Active Substance: BACLOFEN
     Route: 065
     Dates: start: 20140818, end: 20140826
  191. BACLOFEN. [Concomitant]
     Active Substance: BACLOFEN
     Route: 048
     Dates: start: 20170424
  192. L-ARGININE [Concomitant]
     Active Substance: ARGININE
     Route: 065
     Dates: start: 19980101, end: 20140816
  193. BIOCEUTICALS COENZYME Q10 [Concomitant]
     Route: 065
     Dates: start: 19980101, end: 20140816
  194. MAGNESIUM SULFATE. [Concomitant]
     Active Substance: MAGNESIUM SULFATE
     Indication: HYPOMAGNESAEMIA
     Route: 065
     Dates: start: 20140816, end: 20140818
  195. VALIUM [Concomitant]
     Active Substance: DIAZEPAM
     Indication: ANXIETY
     Route: 065
     Dates: start: 20131028, end: 20131028
  196. VALIUM [Concomitant]
     Active Substance: DIAZEPAM
     Route: 065
     Dates: start: 20150422
  197. VITAMIN C [Concomitant]
     Active Substance: ASCORBIC ACID
     Route: 065
     Dates: start: 20140817
  198. XANAX [Concomitant]
     Active Substance: ALPRAZOLAM
     Indication: ANXIETY
     Route: 065
     Dates: start: 20131210, end: 20131210
  199. FENTANYL. [Concomitant]
     Active Substance: FENTANYL
     Indication: MUSCULOSKELETAL PAIN
     Route: 065
     Dates: start: 20140816, end: 20140817
  200. LORAZEPAM. [Concomitant]
     Active Substance: LORAZEPAM
     Route: 065
     Dates: start: 20140816, end: 20140826
  201. CIPROFLOXACIN. [Concomitant]
     Active Substance: CIPROFLOXACIN
     Indication: SYSTEMIC INFLAMMATORY RESPONSE SYNDROME
  202. OXYCODONE [Concomitant]
     Active Substance: OXYCODONE
     Indication: SYSTEMIC INFLAMMATORY RESPONSE SYNDROME
     Route: 065
     Dates: start: 20140816, end: 20140816
  203. POTASSIUM CHLORIDE. [Concomitant]
     Active Substance: POTASSIUM CHLORIDE
     Dosage: POTASSIUM REPLACEMENT WHILE  ON DIURETIC
     Route: 065
     Dates: start: 20170911
  204. POTASSIUM CHLORIDE. [Concomitant]
     Active Substance: POTASSIUM CHLORIDE
     Route: 048
  205. DIPHENHYDRAMINE. [Concomitant]
     Active Substance: DIPHENHYDRAMINE
     Route: 065
     Dates: start: 20151001, end: 20151001
  206. DIPHENHYDRAMINE. [Concomitant]
     Active Substance: DIPHENHYDRAMINE
     Route: 065
     Dates: start: 20151023, end: 20151023
  207. PHENYLEPHRINE HCL [Concomitant]
     Active Substance: PHENYLEPHRINE HYDROCHLORIDE
     Indication: UPPER RESPIRATORY TRACT INFECTION
     Route: 065
     Dates: start: 20150731, end: 20150804
  208. LOVENOX [Concomitant]
     Active Substance: ENOXAPARIN SODIUM
     Route: 065
     Dates: start: 20161027, end: 20161116
  209. LOVENOX [Concomitant]
     Active Substance: ENOXAPARIN SODIUM
     Route: 065
     Dates: start: 20170417, end: 20170519
  210. CODEINE [Concomitant]
     Active Substance: CODEINE
     Indication: PNEUMONIA
  211. OCRELIZUMAB. [Suspect]
     Active Substance: OCRELIZUMAB
     Route: 042
     Dates: start: 20141029, end: 20141029

REACTIONS (4)
  - Cellulitis [Recovered/Resolved]
  - Cellulitis [Recovered/Resolved with Sequelae]
  - Cellulitis [Recovered/Resolved]
  - Bursitis infective [Recovered/Resolved]

NARRATIVE: CASE EVENT DATE: 20130123
